FAERS Safety Report 8970855 (Version 1)
Quarter: 2012Q4

REPORT INFORMATION
  Report Type: 
  Country: NL (occurrence: NL)
  Receive Date: 20121211
  Receipt Date: 20121211
  Transmission Date: 20130627
  Serious: Yes (Hospitalization, Other)
  Sender: FDA-Public Use
  Company Number: NL-PFIZER INC-2012306886

PATIENT
  Age: 72 Year
  Sex: Female
  Weight: 74 kg

DRUGS (10)
  1. GENOTROPIN [Suspect]
     Dosage: 0.4 mg, 1x/day, 7 injections/week
     Route: 058
     Dates: start: 20030501
  2. CORTISONE ACETATE [Concomitant]
     Indication: ACTH DECREASED
     Dosage: UNK
     Dates: start: 19760101
  3. THYRAX [Concomitant]
     Indication: THYROID DISORDER
     Dosage: UNK
     Dates: start: 19760101
  4. THYRAX [Concomitant]
     Indication: PRIMARY HYPOTHYROIDISM
  5. ZUMESTON [Concomitant]
     Indication: LUTEINISING HORMONE DEFICIENCY
     Dosage: UNK
     Dates: start: 20060301
  6. ZUMESTON [Concomitant]
     Indication: FOLLICLE-STIMULATING HORMONE DEFICIENCY
  7. ZUMESTON [Concomitant]
     Indication: OVARIAN DISORDER
  8. ZUMESTON [Concomitant]
     Indication: HYPOGONADISM
  9. CALCICHEW-D3 [Concomitant]
     Indication: OSTEOPOROSIS
     Dosage: UNK
     Dates: start: 20061018
  10. OXAZEPAM [Concomitant]
     Indication: SEDATION
     Dosage: UNK
     Dates: start: 20090408

REACTIONS (1)
  - Adrenal insufficiency [Unknown]
